FAERS Safety Report 11111695 (Version 2)
Quarter: 2015Q2

REPORT INFORMATION
  Report Type: Report from Study
  Country: GR (occurrence: GR)
  Receive Date: 20150514
  Receipt Date: 20150523
  Transmission Date: 20150821
  Serious: Yes (Death, Other)
  Sender: FDA-Public Use
  Company Number: GR-AMGEN-GRCNI2015032124

PATIENT
  Age: 83 Year
  Sex: Female

DRUGS (2)
  1. DENOSUMAB [Suspect]
     Active Substance: DENOSUMAB
     Indication: PROPHYLAXIS
     Dosage: 120 MG, Q4WK
     Route: 058
     Dates: start: 20141008
  2. ERIBULIN [Concomitant]
     Active Substance: ERIBULIN
     Dosage: 1.66 MG, Q3WK
     Route: 042
     Dates: start: 20150220, end: 20150220

REACTIONS (3)
  - Disease progression [Unknown]
  - Hepatic failure [Unknown]
  - Cardiac arrest [Fatal]
